FAERS Safety Report 24769366 (Version 1)
Quarter: 2024Q4

REPORT INFORMATION
  Report Type: Report from Study
  Country: IN (occurrence: IN)
  Receive Date: 20241224
  Receipt Date: 20241224
  Transmission Date: 20250115
  Serious: Yes (Death, Other)
  Sender: CIPLA
  Company Number: IN-CIPLA LTD.-2023IN06554

PATIENT

DRUGS (6)
  1. METOPROLOL TARTRATE [Suspect]
     Active Substance: METOPROLOL TARTRATE
     Indication: Product used for unknown indication
     Dosage: UNK (25 MG)
     Route: 048
  2. TELMA-H [Concomitant]
     Indication: Product used for unknown indication
     Dosage: UNK
     Route: 065
  3. NITROCONTIN [Concomitant]
     Indication: Product used for unknown indication
     Dosage: UNK
     Route: 065
  4. ASPIRIN [Concomitant]
     Active Substance: ASPIRIN
     Indication: Product used for unknown indication
     Dosage: UNK
     Route: 065
  5. CLOPILET [CLOPIDOGREL] [Concomitant]
     Indication: Product used for unknown indication
     Dosage: UNK
     Route: 065
  6. TORVAS [Concomitant]
     Indication: Product used for unknown indication
     Dosage: UNK
     Route: 065

REACTIONS (1)
  - Embolic stroke [Fatal]
